FAERS Safety Report 10282270 (Version 1)
Quarter: 2014Q3

REPORT INFORMATION
  Report Type: Spontaneous
  Country: CH (occurrence: CH)
  Receive Date: 20140707
  Receipt Date: 20140707
  Transmission Date: 20150326
  Serious: Yes (Death, Other)
  Sender: FDA-Public Use
  Company Number: CH-PFIZER INC-2014186375

PATIENT
  Age: 83 Year
  Sex: Male

DRUGS (21)
  1. ZOLDORM [Concomitant]
     Active Substance: ZOLPIDEM TARTRATE
  2. EUTHYROX [Concomitant]
     Active Substance: LEVOTHYROXINE SODIUM
  3. NOVALGIN [Concomitant]
     Active Substance: METAMIZOLE SODIUM
  4. VALACICLOVIR [Concomitant]
     Active Substance: VALACYCLOVIR HYDROCHLORIDE
     Dosage: UNK
     Dates: start: 20140519
  5. ALDACTONE [Concomitant]
     Active Substance: SPIRONOLACTONE
  6. ARANESP [Concomitant]
     Active Substance: DARBEPOETIN ALFA
  7. SYMBICORT [Concomitant]
     Active Substance: BUDESONIDE\FORMOTEROL FUMARATE DIHYDRATE
  8. CELLCEPT [Suspect]
     Active Substance: MYCOPHENOLATE MOFETIL\MYCOPHENOLATE MOFETIL HYDROCHLORIDE
     Indication: PROPHYLAXIS AGAINST TRANSPLANT REJECTION
     Dosage: 500 MG, 2X/DAY, 1 EVERY 12 HOURS
     Route: 048
     Dates: start: 2002
  9. CIPRALEX [Concomitant]
     Active Substance: ESCITALOPRAM OXALATE
  10. PANTOZOL [Concomitant]
     Active Substance: PANTOPRAZOLE SODIUM
  11. LAXOBERON [Concomitant]
     Active Substance: SODIUM PICOSULFATE
  12. TEMGESIC SUBLINGUAL [Concomitant]
  13. ATORVASTATIN [Concomitant]
     Active Substance: ATORVASTATIN
  14. PRAMIPEXOL MEPHA [Concomitant]
  15. ZYLORIC [Concomitant]
     Active Substance: ALLOPURINOL
  16. TANNOSYNT [Concomitant]
     Dosage: UNK
     Dates: start: 20140520
  17. TORASEMIDE [Concomitant]
     Active Substance: TORSEMIDE
  18. LAXIPLANT SOFT [Concomitant]
  19. RAPAMUNE [Suspect]
     Active Substance: SIROLIMUS
     Indication: PROPHYLAXIS AGAINST TRANSPLANT REJECTION
     Dosage: 1 MG, 1X/DAY
     Route: 048
     Dates: start: 2002
  20. FOSAMAX [Concomitant]
     Active Substance: ALENDRONATE SODIUM
  21. TRANSTEC TTS [Concomitant]

REACTIONS (5)
  - Herpes zoster cutaneous disseminated [Recovering/Resolving]
  - Lower gastrointestinal haemorrhage [Unknown]
  - Herpes zoster meningoencephalitis [Fatal]
  - Pneumonia aspiration [Fatal]
  - Tibia fracture [Not Recovered/Not Resolved]

NARRATIVE: CASE EVENT DATE: 201402
